FAERS Safety Report 14606115 (Version 5)
Quarter: 2020Q3

REPORT INFORMATION
  Report Type: Report from Study
  Country: US (occurrence: US)
  Receive Date: 20180307
  Receipt Date: 20200720
  Transmission Date: 20201102
  Serious: Yes (Other)
  Sender: FDA-Public Use
  Company Number: PHEH2018US008308

PATIENT
  Sex: Female

DRUGS (1)
  1. ENTRESTO [Suspect]
     Active Substance: SACUBITRIL\VALSARTAN
     Indication: CARDIAC FAILURE
     Dosage: UNK
     Route: 048

REACTIONS (6)
  - Glycosylated haemoglobin increased [Unknown]
  - Chest pain [Unknown]
  - Fatigue [Unknown]
  - Blindness [Unknown]
  - Hypertension [Unknown]
  - Diabetes mellitus [Unknown]
